FAERS Safety Report 14211176 (Version 1)
Quarter: 2017Q4

REPORT INFORMATION
  Report Type: Spontaneous
  Country: KR (occurrence: KR)
  Receive Date: 20171121
  Receipt Date: 20171121
  Transmission Date: 20180321
  Serious: Yes (Other)
  Sender: FDA-Public Use
  Company Number: KR-CELGENEUS-KOR-20171104805

PATIENT

DRUGS (2)
  1. THALIDOMIDE CELGENE [Suspect]
     Active Substance: THALIDOMIDE
     Indication: PLASMA CELL MYELOMA
     Route: 048
  2. DEXAMETHASONE. [Concomitant]
     Active Substance: DEXAMETHASONE
     Indication: PLASMA CELL MYELOMA
     Dosage: 10 MILLIGRAM
     Route: 065

REACTIONS (6)
  - Deep vein thrombosis [Unknown]
  - Upper respiratory tract infection [Unknown]
  - Plasma cell myeloma [Unknown]
  - Hepatitis fulminant [Unknown]
  - Pneumonia [Unknown]
  - Neuropathy peripheral [Unknown]
